FAERS Safety Report 5606345-1 (Version None)
Quarter: 2008Q1

REPORT INFORMATION
  Report Type: 
  Country: None (occurrence: None)
  Receive Date: 20080129
  Receipt Date: 20070709
  Transmission Date: 20080703
  Serious: No
  Sender: FDA-Public Use
  Company Number: A0663807A

PATIENT
  Sex: Female

DRUGS (1)
  1. WELLBUTRIN [Suspect]
     Indication: DRUG USE FOR UNKNOWN INDICATION
     Dates: end: 20070703

REACTIONS (4)
  - DISORIENTATION [None]
  - DRUG EXPOSURE DURING PREGNANCY [None]
  - SENSORY DISTURBANCE [None]
  - WITHDRAWAL SYNDROME [None]
